FAERS Safety Report 4736399-6 (Version None)
Quarter: 2005Q3

REPORT INFORMATION
  Report Type: 
  Country: None (occurrence: None)
  Receive Date: 20050808
  Receipt Date: 20050615
  Transmission Date: 20060218
  Serious: Yes (Disabling)
  Sender: FDA-Public Use
  Company Number: ES-BRISTOL-MYERS SQUIBB COMPANY-13036850

PATIENT
  Age: 50 Year
  Sex: Male

DRUGS (3)
  1. KARVEZIDE TABS 300MG/12.5MG [Suspect]
     Indication: HYPERTENSION
     Route: 048
     Dates: start: 20050201
  2. ATENOLOL [Interacting]
     Indication: HYPERTENSION
     Route: 048
     Dates: start: 20010101
  3. METFORMIN HCL [Concomitant]
     Route: 048
     Dates: start: 20050201

REACTIONS (3)
  - DIZZINESS [None]
  - DRUG INTERACTION [None]
  - PARAESTHESIA [None]
